FAERS Safety Report 23522316 (Version 1)
Quarter: 2024Q1

REPORT INFORMATION
  Report Type: Report from Study
  Country: US (occurrence: US)
  Receive Date: 20240214
  Receipt Date: 20240214
  Transmission Date: 20240410
  Serious: Yes (Hospitalization)
  Sender: FDA-Public Use
  Company Number: US-BEH-2024168489

PATIENT
  Age: 84 Year
  Sex: Female
  Weight: 61.4 kg

DRUGS (2)
  1. BERINERT [Suspect]
     Active Substance: HUMAN C1-ESTERASE INHIBITOR
     Indication: Hereditary angioedema
     Dosage: 25 INTERNATIONAL UNIT/KILOGRAM, PRN
     Route: 042
  2. BERINERT [Suspect]
     Active Substance: HUMAN C1-ESTERASE INHIBITOR
     Indication: Hereditary angioedema
     Dosage: 25 INTERNATIONAL UNIT/KILOGRAM, PRN
     Route: 042

REACTIONS (1)
  - Gastrointestinal tube insertion [Recovering/Resolving]
